FAERS Safety Report 23513493 (Version 1)
Quarter: 2024Q1

REPORT INFORMATION
  Report Type: Spontaneous
  Country: GB (occurrence: GB)
  Receive Date: 20240212
  Receipt Date: 20240212
  Transmission Date: 20240410
  Serious: Yes (Death, Life-Threatening, Hospitalization, Other)
  Sender: FDA-Public Use
  Company Number: GB-STRIDES ARCOLAB LIMITED-2024SP001496

PATIENT
  Age: 5 Decade
  Sex: Female

DRUGS (10)
  1. PREDNISOLONE [Suspect]
     Active Substance: PREDNISOLONE
     Indication: Hepatitis
     Dosage: 40 MILLIGRAM
     Route: 048
  2. MYCOPHENOLATE MOFETIL [Suspect]
     Active Substance: MYCOPHENOLATE MOFETIL
     Indication: Hepatitis
     Dosage: UNK
     Route: 065
  3. METHYLPREDNISOLONE [Suspect]
     Active Substance: METHYLPREDNISOLONE
     Indication: Hepatitis
     Dosage: 1 MILLIGRAM/KILOGRAM, DAILY
     Route: 042
  4. AVELUMAB [Concomitant]
     Active Substance: AVELUMAB
     Indication: Triple negative breast cancer
     Dosage: UNK
     Route: 065
  5. COTRIMOXAZOLE [Concomitant]
     Active Substance: SULFAMETHOXAZOLE\TRIMETHOPRIM
     Indication: Hepatitis
     Dosage: UNK
     Route: 065
  6. ENOXAPARIN [Concomitant]
     Active Substance: ENOXAPARIN
     Indication: Hepatitis
     Dosage: UNK
     Route: 065
  7. NOREPINEPHRINE [Concomitant]
     Active Substance: NOREPINEPHRINE
     Indication: Hepatitis
     Dosage: UNK
     Route: 065
  8. MILRINONE [Concomitant]
     Active Substance: MILRINONE
     Indication: Hepatitis
     Dosage: UNK
     Route: 065
  9. SILDENAFIL [Concomitant]
     Active Substance: SILDENAFIL
     Indication: Hepatitis
     Dosage: UNK
     Route: 065
  10. INFLIXIMAB [Concomitant]
     Active Substance: INFLIXIMAB
     Indication: Hepatitis
     Dosage: UNK
     Route: 065

REACTIONS (7)
  - Metastatic neoplasm [Fatal]
  - Pulmonary tumour thrombotic microangiopathy [Fatal]
  - Respiratory failure [Fatal]
  - Right ventricular failure [Unknown]
  - Pulmonary hypertension [Unknown]
  - Therapy non-responder [Unknown]
  - Off label use [Unknown]
